FAERS Safety Report 7487630-8 (Version None)
Quarter: 2011Q2

REPORT INFORMATION
  Report Type: 
  Country: None (occurrence: None)
  Receive Date: 20110518
  Receipt Date: 20110513
  Transmission Date: 20111010
  Serious: Yes (Hospitalization)
  Sender: FDA-Public Use
  Company Number: US-SANOFI-AVENTIS-2011SA030028

PATIENT
  Age: 77 Year
  Sex: Female
  Weight: 40.82 kg

DRUGS (3)
  1. DABIGATRAN ETEXILATE [Suspect]
     Route: 065
     Dates: end: 20110323
  2. ALL OTHER THERAPEUTIC PRODUCTS [Concomitant]
  3. MULTAQ [Suspect]
     Route: 048

REACTIONS (1)
  - GASTROINTESTINAL HAEMORRHAGE [None]
